FAERS Safety Report 16694602 (Version 1)
Quarter: 2019Q3

REPORT INFORMATION
  Report Type: Spontaneous
  Country: FR (occurrence: FR)
  Receive Date: 20190812
  Receipt Date: 20190812
  Transmission Date: 20191004
  Serious: Yes (Other)
  Sender: FDA-Public Use
  Company Number: FR-MYLANLABS-2019M1074643

PATIENT
  Age: 86 Year
  Sex: Male

DRUGS (10)
  1. BISOCE [Suspect]
     Active Substance: BISOPROLOL
     Indication: HYPERTENSION
     Dosage: 1-0-0
     Route: 048
     Dates: start: 20181209
  2. DUROGESIC [Suspect]
     Active Substance: FENTANYL
     Indication: PAIN
     Dosage: 12 MICROGRAM, Q3D
     Dates: start: 20181112
  3. KARDEGIC [Suspect]
     Active Substance: ASPIRIN DL-LYSINE
     Indication: THROMBOSIS PROPHYLAXIS
     Dosage: 1-0-0
     Route: 048
     Dates: start: 2018
  4. PREDNISOLONE TEVA [Suspect]
     Active Substance: PREDNISOLONE
     Indication: LYMPHANGIOSIS CARCINOMATOSA
     Dosage: 100 MILLIGRAM, QD
     Route: 048
     Dates: start: 20181220
  5. RAMIPRIL RATIOPHARM [Suspect]
     Active Substance: RAMIPRIL
     Indication: HYPERTENSION
     Dosage: 1-0-0
     Route: 048
     Dates: start: 2018
  6. MYLAN-LANSOPRAZOLE [Suspect]
     Active Substance: LANSOPRAZOLE
     Indication: GASTROOESOPHAGEAL REFLUX DISEASE
     Dosage: 0-0-1
     Route: 048
     Dates: start: 20181015
  7. PREDNISOLONE MYLAN [Suspect]
     Active Substance: PREDNISOLONE
     Indication: LYMPHANGIOSIS CARCINOMATOSA
     Dosage: 120 MILLIGRAM
     Route: 042
     Dates: start: 20181218, end: 20181218
  8. ATORVASTATINE TEVA [Suspect]
     Active Substance: ATORVASTATIN
     Indication: HYPERCHOLESTEROLAEMIA
     Dosage: 1-0-0
     Route: 048
     Dates: start: 2018
  9. ALPRAZOLAM MERCK [Suspect]
     Active Substance: ALPRAZOLAM
     Indication: ANXIETY
     Dosage: 1/2 ? 2 LE SOIR
     Route: 048
     Dates: start: 20181216
  10. SOLUPRED                           /00016217/ [Suspect]
     Active Substance: PREDNISOLONE SODIUM METAZOATE
     Indication: LYMPHANGIOSIS CARCINOMATOSA
     Dosage: DU 06/12/18 AU 13/12/18 : 2/J; DU 14/12/18 AU 17/12/18 : 1/J;LE 19/12/18 : 5/J
     Route: 048
     Dates: start: 20181206

REACTIONS (1)
  - Cholestasis [Recovering/Resolving]

NARRATIVE: CASE EVENT DATE: 20181128
